FAERS Safety Report 4939321-2 (Version None)
Quarter: 2006Q1

REPORT INFORMATION
  Report Type: 
  Country: None (occurrence: None)
  Receive Date: 20060306
  Receipt Date: 20060223
  Transmission Date: 20060701
  Serious: Yes (Life-Threatening, Hospitalization)
  Sender: FDA-Public Use
  Company Number: 2006-01-1640

PATIENT
  Age: 49 Year
  Sex: Male
  Weight: 88 kg

DRUGS (7)
  1. PEG-INTERFERON ALFA-2B INJECTABLE [Suspect]
     Indication: HEPATITIS C
     Dosage: 150 UG QWK SUBCUTANEOUS
     Route: 058
     Dates: start: 20050324, end: 20050908
  2. RIBAVIRIN [Suspect]
     Indication: HEPATITIS C
     Dosage: 1200 MG QD ORAL
     Route: 048
     Dates: start: 20050324, end: 20050908
  3. CELEXA [Concomitant]
  4. METHADONE [Concomitant]
  5. AMITRIPTYLINE HCL [Concomitant]
  6. ELTROXIN [Concomitant]
  7. INDOMETHACIN [Concomitant]

REACTIONS (6)
  - ACTIVATED PARTIAL THROMBOPLASTIN TIME PROLONGED [None]
  - DEEP VEIN THROMBOSIS [None]
  - HAEMATOCRIT DECREASED [None]
  - HAEMOGLOBIN DECREASED [None]
  - INTERNATIONAL NORMALISED RATIO DECREASED [None]
  - RED BLOOD CELL COUNT DECREASED [None]
